FAERS Safety Report 7815607-9 (Version None)
Quarter: 2011Q4

REPORT INFORMATION
  Report Type: 
  Country: None (occurrence: None)
  Receive Date: 20111014
  Receipt Date: 20111011
  Transmission Date: 20120403
  Serious: Yes (Other)
  Sender: FDA-Public Use
  Company Number: JP-PFIZER INC-2011234657

PATIENT
  Age: 50 Year
  Sex: Female

DRUGS (1)
  1. ZITHROMAX [Suspect]
     Indication: NASOPHARYNGITIS
     Dosage: 1 DF, SINGLE
     Route: 048
     Dates: start: 20110930, end: 20110930

REACTIONS (2)
  - ABDOMINAL PAIN [None]
  - LOSS OF CONSCIOUSNESS [None]
